FAERS Safety Report 10241153 (Version 1)
Quarter: 2014Q2

REPORT INFORMATION
  Report Type: Spontaneous
  Country: US (occurrence: US)
  Receive Date: 20140617
  Receipt Date: 20140617
  Transmission Date: 20141212
  Serious: No
  Sender: FDA-Public Use
  Company Number: US-PFIZER INC-2014163976

PATIENT
  Age: 79 Year
  Sex: Male
  Weight: 93 kg

DRUGS (2)
  1. TIKOSYN [Suspect]
     Indication: ATRIAL FIBRILLATION
     Dosage: 250 UG, 2X/DAY
     Dates: start: 2013
  2. TIKOSYN [Suspect]
     Dosage: 250 UG, 2X/DAY
     Dates: start: 2014

REACTIONS (1)
  - Drug ineffective [Unknown]
